FAERS Safety Report 14308743 (Version 2)
Quarter: 2018Q1

REPORT INFORMATION
  Report Type: Spontaneous
  Country: JP (occurrence: JP)
  Receive Date: 20171220
  Receipt Date: 20180103
  Transmission Date: 20180509
  Serious: Yes (Hospitalization)
  Sender: FDA-Public Use
  Company Number: PHHY2017JP188594

PATIENT
  Age: 89 Year
  Sex: Female

DRUGS (3)
  1. CLOPIDOGREL [Suspect]
     Active Substance: CLOPIDOGREL BISULFATE
     Indication: THROMBOTIC CEREBRAL INFARCTION
     Dosage: UNK
     Route: 048
     Dates: start: 2015
  2. SLONNON [Suspect]
     Active Substance: ARGATROBAN
     Indication: CEREBRAL INFARCTION
     Dosage: UNK
     Route: 065
     Dates: start: 201703
  3. WARFARIN POTASSIUM [Suspect]
     Active Substance: WARFARIN POTASSIUM
     Indication: EMBOLIC STROKE
     Dosage: UNK
     Route: 048
     Dates: start: 201410

REACTIONS (4)
  - Retroperitoneal haematoma [Recovering/Resolving]
  - Muscle haemorrhage [Recovering/Resolving]
  - Hepatic function abnormal [Unknown]
  - Muscle haemorrhage [Recovering/Resolving]

NARRATIVE: CASE EVENT DATE: 201702
